FAERS Safety Report 19846863 (Version 1)
Quarter: 2021Q3

REPORT INFORMATION
  Report Type: Spontaneous
  Country: US (occurrence: US)
  Receive Date: 20210917
  Receipt Date: 20210917
  Transmission Date: 20211014
  Serious: No
  Sender: FDA-Public Use
  Company Number: US-RECKITT BENCKISER HEALTHCARE INT LIMITED-RB-84370-2021

PATIENT
  Age: 53 Year
  Sex: Female

DRUGS (2)
  1. MUCINEX FAST?MAX CHEST CONGESTION HONEY AND BERRY FLAVOR [Suspect]
     Active Substance: GUAIFENESIN
     Indication: RESPIRATORY TRACT CONGESTION
     Dosage: 20 MILLILITER, SINGLE
     Route: 065
     Dates: start: 202102, end: 202102
  2. MUCINEX MAXIMUM STRENGTH [Suspect]
     Active Substance: GUAIFENESIN
     Indication: RESPIRATORY TRACT CONGESTION
     Dosage: 1200 MILLIGRAM, SINGLE
     Route: 048
     Dates: start: 20210212, end: 20210212

REACTIONS (4)
  - Dyspepsia [Not Recovered/Not Resolved]
  - Nausea [Recovered/Resolved]
  - Foreign body in throat [Recovered/Resolved]
  - Oesophageal pain [Not Recovered/Not Resolved]

NARRATIVE: CASE EVENT DATE: 202102
